FAERS Safety Report 10685962 (Version 8)
Quarter: 2016Q2

REPORT INFORMATION
  Report Type: Spontaneous
  Country: CA (occurrence: CA)
  Receive Date: 20141231
  Receipt Date: 20160520
  Transmission Date: 20160815
  Serious: Yes (Other)
  Sender: FDA-Public Use
  Company Number: CA-GLAXOSMITHKLINE-A0989166A

PATIENT
  Age: 42 Year
  Sex: Female
  Weight: 65 kg

DRUGS (17)
  1. BENLYSTA [Suspect]
     Active Substance: BELIMUMAB
     Dosage: 630 MG, CYC
     Route: 042
     Dates: start: 2008
  2. PREDNISONE. [Concomitant]
     Active Substance: PREDNISONE
     Indication: SYSTEMIC LUPUS ERYTHEMATOSUS
     Dosage: 20 MG, 1D
     Route: 048
  3. METRONIDAZOLE. [Concomitant]
     Active Substance: METRONIDAZOLE
     Indication: LICHEN PLANUS
     Dosage: 400 MG, UNK
  4. IMURAN [Concomitant]
     Active Substance: AZATHIOPRINE
     Indication: IMMUNOSUPPRESSION
     Dosage: 50 MG, BID
     Route: 048
  5. PLAQUENIL [Concomitant]
     Active Substance: HYDROXYCHLOROQUINE SULFATE
     Indication: SYSTEMIC LUPUS ERYTHEMATOSUS
     Dosage: 25 MG, QD
     Route: 048
  6. METRONIDAZOLE. [Concomitant]
     Active Substance: METRONIDAZOLE
     Dosage: 120 MG, UNK
     Dates: end: 20160301
  7. BENLYSTA [Suspect]
     Active Substance: BELIMUMAB
     Dosage: 120 MG, UNK
     Route: 042
     Dates: start: 20120625
  8. IMURAN [Concomitant]
     Active Substance: AZATHIOPRINE
     Indication: SYSTEMIC LUPUS ERYTHEMATOSUS
     Dosage: UNK UNK, U
     Route: 048
  9. PLAQUENIL [Concomitant]
     Active Substance: HYDROXYCHLOROQUINE SULFATE
     Dosage: 200 MG, BID
     Route: 048
  10. CIPRO [Concomitant]
     Active Substance: CIPROFLOXACIN HYDROCHLORIDE
     Indication: PRODUCT USED FOR UNKNOWN INDICATION
     Dosage: UNK
  11. BENLYSTA [Suspect]
     Active Substance: BELIMUMAB
     Indication: SYSTEMIC LUPUS ERYTHEMATOSUS
     Dosage: AT WEEK 0, 2, 4 WKS THEN EVERY 4 WEEKS
     Route: 042
     Dates: start: 20120517
  12. BENLYSTA [Suspect]
     Active Substance: BELIMUMAB
     Dosage: 630 MG, CYC
     Route: 042
     Dates: start: 2008
  13. PREDNISONE. [Concomitant]
     Active Substance: PREDNISONE
     Indication: IMMUNOSUPPRESSION
     Dosage: 25 MG, QD
     Route: 048
  14. BENLYSTA [Suspect]
     Active Substance: BELIMUMAB
     Dosage: 600 MG Q4 WEEKS
     Route: 042
  15. BENLYSTA [Suspect]
     Active Substance: BELIMUMAB
     Dosage: 400 MG, UNK
     Route: 042
  16. BENLYSTA [Suspect]
     Active Substance: BELIMUMAB
     Dosage: 400 MG, UNK
     Route: 042
     Dates: start: 20120625
  17. BENLYSTA [Suspect]
     Active Substance: BELIMUMAB
     Dosage: UNK,600
     Route: 042
     Dates: end: 20160213

REACTIONS (16)
  - Headache [Recovered/Resolved]
  - Abdominal discomfort [Recovered/Resolved]
  - Erythema [Unknown]
  - Drug prescribing error [Unknown]
  - Pneumonia [Recovered/Resolved]
  - Herpes zoster [Recovering/Resolving]
  - Weight decreased [Recovered/Resolved]
  - Incorrect dose administered [Unknown]
  - Photosensitivity reaction [Unknown]
  - Malaise [Unknown]
  - Nasopharyngitis [Unknown]
  - Herpes zoster cutaneous disseminated [Recovering/Resolving]
  - Lichen planus [Recovered/Resolved]
  - Therapeutic response unexpected [Unknown]
  - Diarrhoea [Recovered/Resolved]
  - Upper respiratory tract infection [Unknown]

NARRATIVE: CASE EVENT DATE: 20120808
